FAERS Safety Report 13504267 (Version 1)
Quarter: 2017Q2

REPORT INFORMATION
  Report Type: Spontaneous
  Country: SE (occurrence: SE)
  Receive Date: 20170502
  Receipt Date: 20170502
  Transmission Date: 20170830
  Serious: Yes (Hospitalization)
  Sender: FDA-Public Use
  Company Number: SE-PFIZER INC-2017184979

PATIENT
  Age: 38 Year
  Sex: Male

DRUGS (9)
  1. ALLOPURINOL NORDIC DRUGS [Concomitant]
  2. CYMBALTA [Concomitant]
     Active Substance: DULOXETINE HYDROCHLORIDE
  3. CIRCADIN [Concomitant]
     Active Substance: MELATONIN
  4. XANOR [Suspect]
     Active Substance: ALPRAZOLAM
     Dosage: 60 DF, SINGLE
     Route: 048
     Dates: start: 20150612, end: 20150612
  5. CIALIS [Concomitant]
     Active Substance: TADALAFIL
  6. VOLTAREN [Concomitant]
     Active Substance: DICLOFENAC SODIUM
  7. LEPHETON [Concomitant]
     Active Substance: EPHEDRINE\ETHYLMORPHINE
  8. ALVEDON [Concomitant]
     Active Substance: ACETAMINOPHEN
  9. ENALAPRIL ASTIMEX [Concomitant]

REACTIONS (2)
  - Overdose [Recovered/Resolved]
  - Suicide attempt [Recovered/Resolved]

NARRATIVE: CASE EVENT DATE: 20150612
